FAERS Safety Report 24137980 (Version 2)
Quarter: 2024Q3

REPORT INFORMATION
  Report Type: Spontaneous
  Country: HU (occurrence: HU)
  Receive Date: 20240725
  Receipt Date: 20240802
  Transmission Date: 20241017
  Serious: No
  Sender: MYLAN
  Company Number: HU-MYLANLABS-2024M1068755

PATIENT
  Age: 15 Year

DRUGS (1)
  1. INSPRA [Suspect]
     Active Substance: EPLERENONE
     Indication: Dilated cardiomyopathy
     Dosage: 50 MILLIGRAM, QD (ONCE DAILY)
     Route: 065

REACTIONS (1)
  - Off label use [Unknown]
